FAERS Safety Report 5163367-5 (Version None)
Quarter: 2006Q4

REPORT INFORMATION
  Report Type: 
  Country: None (occurrence: None)
  Receive Date: 20061204
  Receipt Date: 20061120
  Transmission Date: 20070319
  Serious: Yes (Hospitalization)
  Sender: FDA-Public Use
  Company Number: US-ELI_LILLY_AND_COMPANY-US200611004022

PATIENT
  Sex: Female

DRUGS (2)
  1. FORTEO [Suspect]
     Indication: OSTEOPOROSIS
     Dosage: 20 UG, UNK
     Dates: start: 20061030
  2. HYDROCHLOROTHIAZIDE [Concomitant]

REACTIONS (4)
  - DYSPNOEA [None]
  - INJECTION SITE ERYTHEMA [None]
  - PAIN [None]
  - PULMONARY EMBOLISM [None]
